FAERS Safety Report 22602719 (Version 4)
Quarter: 2023Q2

REPORT INFORMATION
  Report Type: Spontaneous
  Country: US (occurrence: US)
  Receive Date: 20230615
  Receipt Date: 20230630
  Transmission Date: 20230722
  Serious: No
  Sender: FDA-Public Use
  Company Number: US-GLAXOSMITHKLINE-US2023AMR082755

PATIENT
  Sex: Female

DRUGS (1)
  1. ZEJULA [Suspect]
     Active Substance: NIRAPARIB
     Indication: Ovarian cancer
     Dosage: 300 MG, QD

REACTIONS (4)
  - Nausea [Recovering/Resolving]
  - Constipation [Not Recovered/Not Resolved]
  - Mood altered [Unknown]
  - Laboratory test abnormal [Unknown]
